FAERS Safety Report 5228164-0 (Version None)
Quarter: 2007Q1

REPORT INFORMATION
  Report Type: 
  Country: None (occurrence: None)
  Receive Date: 20070130
  Receipt Date: 20070115
  Transmission Date: 20070707
  Serious: Yes (Hospitalization)
  Sender: FDA-Public Use
  Company Number: 2007BI000942

PATIENT
  Age: 58 Year
  Sex: Female
  Weight: 98.8842 kg

DRUGS (7)
  1. AVONEX [Suspect]
     Indication: MULTIPLE SCLEROSIS
     Dosage: 30 UG;QW;IM
     Route: 030
     Dates: start: 20030101, end: 20040101
  2. AVONEX [Suspect]
     Indication: MULTIPLE SCLEROSIS
     Dosage: 30 UG;QW;IM
     Route: 030
     Dates: start: 20061001
  3. CLONAZEPAM [Concomitant]
  4. ATENOLOL [Concomitant]
  5. COZAAR [Concomitant]
  6. HYDROCHLOROTHYAZIDE [Concomitant]
  7. SYNTHROID [Concomitant]

REACTIONS (7)
  - ARTHRITIS [None]
  - DEPRESSION [None]
  - DYSPHAGIA [None]
  - DYSPNOEA [None]
  - GOITRE [None]
  - PAIN IN EXTREMITY [None]
  - WEIGHT INCREASED [None]
